FAERS Safety Report 4426274-9 (Version None)
Quarter: 2004Q3

REPORT INFORMATION
  Report Type: 
  Country: None (occurrence: None)
  Receive Date: 20040811
  Receipt Date: 20040713
  Transmission Date: 20050211
  Serious: Yes (Hospitalization)
  Sender: FDA-Public Use
  Company Number: F01200401931

PATIENT
  Age: 54 Year

DRUGS (1)
  1. HEPARIN [Suspect]
     Indication: ACUTE CORONARY SYNDROME
     Dosage: SUBCUTANEOUS
     Route: 058
     Dates: start: 20040514, end: 20040522

REACTIONS (7)
  - CORONARY ARTERY RESTENOSIS [None]
  - CORONARY ARTERY THROMBOSIS [None]
  - DISEASE RECURRENCE [None]
  - MYOCARDIAL INFARCTION [None]
  - PULMONARY EMBOLISM [None]
  - STENT OCCLUSION [None]
  - THROMBOSIS [None]
